FAERS Safety Report 25845896 (Version 1)
Quarter: 2025Q3

REPORT INFORMATION
  Report Type: Spontaneous
  Country: US (occurrence: US)
  Receive Date: 20250925
  Receipt Date: 20250925
  Transmission Date: 20251020
  Serious: Yes (Other)
  Sender: RANBAXY
  Company Number: US-SUN PHARMACEUTICAL INDUSTRIES INC-2025R1-527644

PATIENT
  Age: 26 Year
  Sex: Male

DRUGS (1)
  1. CLONAZEPAM [Suspect]
     Active Substance: CLONAZEPAM
     Indication: Mania
     Route: 065

REACTIONS (4)
  - Drug ineffective [Unknown]
  - Rhabdomyolysis [Unknown]
  - Upper respiratory tract infection [Unknown]
  - Metabolic acidosis [Unknown]
